FAERS Safety Report 15587294 (Version 1)
Quarter: 2018Q4

REPORT INFORMATION
  Report Type: Report from Study
  Country: PL (occurrence: PL)
  Receive Date: 20181105
  Receipt Date: 20181105
  Transmission Date: 20190205
  Serious: Yes (Hospitalization)
  Sender: FDA-Public Use
  Company Number: PL-LPDUSPRD-20171307

PATIENT
  Age: 68 Year
  Sex: Male
  Weight: 85 kg

DRUGS (26)
  1. INSULIN [Concomitant]
     Active Substance: INSULIN NOS
     Dosage: DOSE UNIT J.M (50 OTHER)
     Route: 042
     Dates: start: 20170721, end: 20170724
  2. GENSULIN N [Concomitant]
     Dosage: 6 J.M (1 IN 1 D)
     Route: 058
     Dates: start: 20170724
  3. ATORIS [Concomitant]
     Active Substance: ATORVASTATIN CALCIUM
     Dosage: 20 MG, 1 IN 1 D
     Route: 048
  4. GLYCEROLUM [Concomitant]
     Dosage: 1 DOSAGE FORMS ( 2 IN 1 D)
     Route: 054
     Dates: start: 20170728, end: 20170728
  5. NOVORAPID [Concomitant]
     Active Substance: INSULIN ASPART
     Dosage: (10-8-6)
     Route: 058
     Dates: start: 201708
  6. AMLODIPINE [Concomitant]
     Active Substance: AMLODIPINE BESYLATE
     Dosage: 5 MG (1 IN 1 D)
     Route: 065
     Dates: start: 201708
  7. CORDARONE [Concomitant]
     Active Substance: AMIODARONE HYDROCHLORIDE
     Dosage: 200 MG (1 IN1 D)
     Route: 048
     Dates: start: 201708
  8. DIUVER [Concomitant]
     Active Substance: TORSEMIDE
     Dosage: 5 MG QD
     Route: 048
     Dates: start: 20170725, end: 20170728
  9. LACTULOSA [Concomitant]
     Active Substance: LACTULOSE
     Dosage: 15 ML , 1 IN 1D
     Route: 048
  10. TORAMIDE [Concomitant]
     Dosage: UNKNOWN
     Route: 048
  11. BISOCARD [Concomitant]
     Active Substance: BISOPROLOL
     Dosage: 5 MG , 1 IN 1 D
     Route: 048
     Dates: end: 201708
  12. OPACORDEN [Concomitant]
     Active Substance: AMIODARONE HYDROCHLORIDE
     Dosage: 200 MG (5 IN 1WK)
     Route: 048
     Dates: start: 20170724, end: 201708
  13. FERINJECT [Suspect]
     Active Substance: FERRIC CARBOXYMALTOSE
     Dosage: 10 ML
     Route: 040
     Dates: start: 20170803, end: 20170803
  14. NAHCO3 [Concomitant]
     Active Substance: SODIUM BICARBONATE
     Dosage: 3 AMP (1 IN 1 D)
     Route: 042
     Dates: start: 20170725, end: 20170726
  15. KCL [Concomitant]
     Active Substance: POTASSIUM CHLORIDE
     Dosage: 20 MILLIEQUIVALENTS, 1 IN 1 D
     Route: 042
     Dates: start: 20170725, end: 20170726
  16. SIOFOR [Concomitant]
     Active Substance: METFORMIN HYDROCHLORIDE
     Dosage: 2000 MG  ( 2 IN1 D)
     Route: 048
     Dates: end: 20170720
  17. IPP [Concomitant]
     Active Substance: PANTOPRAZOLE SODIUM
     Dosage: UNKNOWN
     Route: 065
     Dates: start: 201708
  18. POLOCARD [Concomitant]
     Active Substance: ASPIRIN
     Dosage: 75 MG, (1 IN 1 D)
     Route: 048
  19. GENSULIN R [Concomitant]
     Active Substance: INSULIN HUMAN
     Dosage: 6 J.M ( 3 IN 1 D)
     Route: 058
     Dates: start: 20170720, end: 20170721
  20. NO-SPA [Concomitant]
     Active Substance: DROTAVERINE HYDROCHLORIDE
     Dosage: 1 AMP (TWICE)
     Route: 042
     Dates: start: 20170723, end: 20170723
  21. AMARYL [Concomitant]
     Active Substance: GLIMEPIRIDE
     Dosage: 4 MG , 1 IN 1 D
     Route: 048
     Dates: end: 201708
  22. FUROSEMID [Concomitant]
     Active Substance: FUROSEMIDE
     Dosage: 60 MG (20 MG 3 IN 1D)
     Route: 042
     Dates: start: 20170724, end: 20170727
  23. KALIPOZ [Concomitant]
     Active Substance: POTASSIUM CHLORIDE
     Dosage: 1 DOSAGE FORMS , 1 IN 1 D
     Route: 048
     Dates: start: 20170725, end: 20170802
  24. TRIFAS [Concomitant]
     Dosage: 10 MG (1 IN1 D)
     Route: 048
     Dates: end: 20170721
  25. CYCLONAMINE [Concomitant]
     Active Substance: ETHAMSYLATE
     Dosage: UNKNOWN
     Route: 065
     Dates: start: 201708, end: 2017
  26. TRITACE [Concomitant]
     Active Substance: RAMIPRIL
     Dosage: 2.5 MG ONCE  DAILY
     Route: 048
     Dates: start: 2017, end: 20170727

REACTIONS (1)
  - Chronic kidney disease [Recovered/Resolved]

NARRATIVE: CASE EVENT DATE: 20170823
